FAERS Safety Report 7475878-8 (Version None)
Quarter: 2011Q2

REPORT INFORMATION
  Report Type: 
  Country: None (occurrence: None)
  Receive Date: 20110504
  Receipt Date: 20110419
  Transmission Date: 20111010
  Serious: Yes (Other)
  Sender: FDA-Public Use
  Company Number: 010947

PATIENT

DRUGS (2)
  1. LAMOTRIGINE [Suspect]
     Indication: EPILEPSY
     Dosage: (ORAL)
     Route: 048
  2. LEVETIRACETAM [Suspect]
     Indication: EPILEPSY
     Dosage: (ORAL)
     Route: 048

REACTIONS (3)
  - STATUS EPILEPTICUS [None]
  - DRUG INEFFECTIVE [None]
  - GRAND MAL CONVULSION [None]
